FAERS Safety Report 4298004-5 (Version None)
Quarter: 2004Q1

REPORT INFORMATION
  Report Type: 
  Country: None (occurrence: None)
  Receive Date: 20040218
  Receipt Date: 20011002
  Transmission Date: 20041129
  Serious: Yes (Other)
  Sender: FDA-Public Use
  Company Number: US-BRISTOL-MYERS SQUIBB COMPANY-11036803

PATIENT
  Age: 28 Year
  Sex: Female

DRUGS (12)
  1. STADOL [Suspect]
     Indication: MIGRAINE
     Route: 045
  2. STADOL [Suspect]
     Indication: MIGRAINE
     Dosage: ROUTE OF ADMINISTRATION:  INJECTION
  3. FIORINAL W/CODEINE [Concomitant]
  4. AMITRIPTYLINE HCL [Concomitant]
  5. DEPAKOTE [Concomitant]
  6. HYDROCODONE + ACETAMINOPHEN [Concomitant]
  7. ZOLOFT [Concomitant]
  8. APAP + OXYCODONE [Concomitant]
  9. ASPIRIN + CAFFEINE + BUTALBITAL [Concomitant]
  10. PHENERGAN [Concomitant]
  11. SECONAL SODIUM [Concomitant]
  12. DEMEROL [Concomitant]

REACTIONS (1)
  - DEPENDENCE [None]
